FAERS Safety Report 6535121-0 (Version None)
Quarter: 2010Q1

REPORT INFORMATION
  Report Type: 
  Country: None (occurrence: None)
  Receive Date: 20100113
  Receipt Date: 20100107
  Transmission Date: 20100710
  Serious: Yes (Hospitalization)
  Sender: FDA-Public Use
  Company Number: US-BIOGENIDEC-2009BI036450

PATIENT
  Age: 69 Year
  Sex: Female

DRUGS (10)
  1. TYSABRI [Suspect]
     Indication: MULTIPLE SCLEROSIS
     Route: 042
     Dates: start: 20090903
  2. CALCIUM CITRATE [Concomitant]
     Indication: DRUG USE FOR UNKNOWN INDICATION
  3. MULTI-VITAMIN [Concomitant]
     Indication: SUPPLEMENTATION THERAPY
  4. VITAMIN D [Concomitant]
     Indication: SUPPLEMENTATION THERAPY
  5. TYLENOL (CAPLET) [Concomitant]
     Indication: DRUG USE FOR UNKNOWN INDICATION
  6. MELATONIN PLUS [Concomitant]
     Indication: DRUG USE FOR UNKNOWN INDICATION
  7. ASPIRIN [Concomitant]
     Indication: DRUG USE FOR UNKNOWN INDICATION
  8. DULCOLAX [Concomitant]
     Indication: DRUG USE FOR UNKNOWN INDICATION
  9. BACLOFEN [Concomitant]
     Indication: DRUG USE FOR UNKNOWN INDICATION
  10. SIMVASTATIN [Concomitant]
     Indication: DRUG USE FOR UNKNOWN INDICATION

REACTIONS (4)
  - ARTERIOSCLEROSIS CORONARY ARTERY [None]
  - GAIT DISTURBANCE [None]
  - PROGRESSIVE MULTIPLE SCLEROSIS [None]
  - URINARY TRACT INFECTION [None]
